FAERS Safety Report 9906644 (Version 2)
Quarter: 2014Q1

REPORT INFORMATION
  Report Type: Spontaneous
  Country: US (occurrence: US)
  Receive Date: 20140218
  Receipt Date: 20140218
  Transmission Date: 20141002
  Serious: Yes (Other)
  Sender: FDA-Public Use
  Company Number: US-GE HEALTHCARE MEDICAL DIAGNOSTICS-OSCN-PR-0906S-0321

PATIENT
  Age: 58 Year
  Sex: Male

DRUGS (20)
  1. OMNISCAN [Suspect]
     Indication: PRODUCT USED FOR UNKNOWN INDICATION
     Route: 042
     Dates: start: 20050914, end: 20050914
  2. OMNISCAN [Suspect]
     Route: 042
     Dates: start: 20070419, end: 20070419
  3. MAGNEVIST [Suspect]
     Indication: PRODUCT USED FOR UNKNOWN INDICATION
     Route: 042
     Dates: start: 20060113, end: 20060113
  4. CYMBALTA [Concomitant]
  5. IRON [Concomitant]
     Dates: start: 200503, end: 20070628
  6. RENAGEL [Concomitant]
  7. AMIODARONE [Concomitant]
     Dates: start: 2000, end: 20070627
  8. LISINOPRIL [Concomitant]
  9. NITROGLYCERIN [Concomitant]
  10. NORVASC [Concomitant]
  11. COZAAR [Concomitant]
  12. WARFARIN [Concomitant]
  13. PLAVIX [Concomitant]
  14. LIPITOR [Concomitant]
  15. LABETALOL [Concomitant]
  16. SENSIPAR [Concomitant]
  17. MIRAPEX [Concomitant]
  18. REQUIP [Concomitant]
  19. LYRICA [Concomitant]
  20. COUMADIN [Concomitant]

REACTIONS (1)
  - Nephrogenic systemic fibrosis [Not Recovered/Not Resolved]
